FAERS Safety Report 9166457 (Version 1)
Quarter: 2013Q1

REPORT INFORMATION
  Report Type: Spontaneous
  Country: CA (occurrence: CA)
  Receive Date: 20130315
  Receipt Date: 20130315
  Transmission Date: 20140127
  Serious: Yes (Life-Threatening, Other)
  Sender: FDA-Public Use
  Company Number: CHPA2013CA004668

PATIENT
  Age: 30 Year
  Sex: Female

DRUGS (1)
  1. BUCKLEY^S UNKNOWN [Suspect]
     Indication: NASOPHARYNGITIS
     Dosage: 1 TSP, AS DIRECTED
     Dates: end: 2007

REACTIONS (8)
  - Anaphylactic reaction [Recovered/Resolved]
  - Upper airway obstruction [Recovered/Resolved]
  - Respiratory tract oedema [Recovered/Resolved]
  - Respiratory arrest [Unknown]
  - Drug hypersensitivity [Not Recovered/Not Resolved]
  - Self-induced vomiting [Recovered/Resolved]
  - Food allergy [Not Recovered/Not Resolved]
  - Abdominal discomfort [Unknown]
